FAERS Safety Report 12738246 (Version 1)
Quarter: 2016Q3

REPORT INFORMATION
  Report Type: Spontaneous
  Country: US (occurrence: US)
  Receive Date: 20160913
  Receipt Date: 20160913
  Transmission Date: 20161109
  Serious: No
  Sender: FDA-Public Use
  Company Number: None

PATIENT
  Age: 47 Year
  Sex: Male

DRUGS (1)
  1. ISENTRESS [Suspect]
     Active Substance: RALTEGRAVIR POTASSIUM
     Indication: HIV INFECTION
     Dosage: 10/312016 AND STILL TAKING 9/12/20 400MG BID ORAL
     Route: 048

REACTIONS (1)
  - Insomnia [None]

NARRATIVE: CASE EVENT DATE: 20131031
